FAERS Safety Report 14761715 (Version 1)
Quarter: 2018Q2

REPORT INFORMATION
  Report Type: Spontaneous
  Country: US (occurrence: US)
  Receive Date: 20180416
  Receipt Date: 20180416
  Transmission Date: 20180711
  Serious: No
  Sender: FDA-Public Use
  Company Number: US-BION-006340

PATIENT
  Sex: Female

DRUGS (1)
  1. NAPROXEN SODIUM 220 MG SOFTGEL [Suspect]
     Active Substance: NAPROXEN SODIUM
     Indication: PRODUCT USED FOR UNKNOWN INDICATION

REACTIONS (2)
  - Product leakage [Unknown]
  - Poor quality drug administered [Not Recovered/Not Resolved]
